FAERS Safety Report 14627406 (Version 3)
Quarter: 2018Q3

REPORT INFORMATION
  Report Type: Spontaneous
  Country: US (occurrence: US)
  Receive Date: 20180312
  Receipt Date: 20180904
  Transmission Date: 20181010
  Serious: Yes (Death)
  Sender: FDA-Public Use
  Company Number: PHEH2018US009710

PATIENT
  Age: 89 Year
  Sex: Female

DRUGS (2)
  1. TYKERB [Suspect]
     Active Substance: LAPATINIB DITOSYLATE
     Indication: CARDIAC FAILURE
     Dosage: 2 DF, QD (TOOK 2 TABLET BY MOUTH DAILY ON AN EMPTY STOMACH)
     Route: 048
     Dates: start: 20180114
  2. TYKERB [Suspect]
     Active Substance: LAPATINIB DITOSYLATE
     Indication: OESOPHAGEAL CARCINOMA
     Dosage: 2 DF, QD (ON AN EMPLTY STOMACH 1 HE BEFORE AND 1 HR AFTER MEAL)
     Route: 048
     Dates: start: 20180115

REACTIONS (3)
  - Death [Fatal]
  - Product use in unapproved indication [Unknown]
  - Rash pruritic [Not Recovered/Not Resolved]

NARRATIVE: CASE EVENT DATE: 20180416
